FAERS Safety Report 5193893-4 (Version None)
Quarter: 2006Q4

REPORT INFORMATION
  Report Type: 
  Country: None (occurrence: None)
  Receive Date: 20061222
  Receipt Date: 20061213
  Transmission Date: 20070319
  Serious: Yes (Other)
  Sender: FDA-Public Use
  Company Number: US-GDP-0613933

PATIENT
  Age: 70 Year
  Sex: Female
  Weight: 83.9154 kg

DRUGS (3)
  1. CAPEX [Suspect]
     Indication: SEBORRHOEIC DERMATITIS
     Dosage: 1 APP ONCE TP
     Route: 061
     Dates: start: 20061213, end: 20061213
  2. CAPEX [Suspect]
     Indication: SKIN EXFOLIATION
     Dosage: 1 APP ONCE TP
     Route: 061
     Dates: start: 20061213, end: 20061213
  3. SYNTHROID [Concomitant]

REACTIONS (4)
  - BURNING SENSATION [None]
  - CARDIAC FLUTTER [None]
  - HEART RATE INCREASED [None]
  - HYPOVENTILATION [None]
